FAERS Safety Report 8720474 (Version 2)
Quarter: 2012Q4

REPORT INFORMATION
  Report Type: 
  Country: JP (occurrence: JP)
  Receive Date: 20120813
  Receipt Date: 20120913
  Transmission Date: 20130627
  Serious: Yes (Death, Hospitalization)
  Sender: FDA-Public Use
  Company Number: JP-ROCHE-1097884

PATIENT
  Age: 57 Year
  Sex: Male
  Weight: 45 kg

DRUGS (13)
  1. AVASTIN [Suspect]
     Indication: LUNG ADENOCARCINOMA METASTATIC
     Dosage: The dose interval: It is irregular by 22-39.
     Route: 041
     Dates: start: 20120207, end: 20120629
  2. PARAPLATIN [Suspect]
     Indication: LUNG ADENOCARCINOMA METASTATIC
     Route: 041
     Dates: start: 20120207, end: 20120207
  3. PARAPLATIN [Suspect]
     Indication: LUNG ADENOCARCINOMA METASTATIC
     Route: 041
     Dates: start: 20120302, end: 20120511
  4. VILDAGLIPTIN [Suspect]
     Indication: DIABETES MELLITUS
     Route: 048
     Dates: start: 20120201, end: 20120715
  5. METFORMIN HYDROCHLORIDE [Suspect]
     Indication: DIABETES MELLITUS
     Route: 048
     Dates: start: 20120208, end: 20120715
  6. PACLITAXEL [Suspect]
     Indication: LUNG ADENOCARCINOMA METASTATIC
     Route: 041
     Dates: start: 20120207, end: 20120207
  7. PACLITAXEL [Suspect]
     Indication: LUNG ADENOCARCINOMA METASTATIC
     Route: 041
     Dates: start: 20120302, end: 20120511
  8. LOXONIN [Concomitant]
     Indication: CHEST PAIN
     Route: 048
     Dates: start: 20120126, end: 20120711
  9. TAKEPRON [Concomitant]
     Indication: PROPHYLAXIS AGAINST GASTROINTESTINAL ULCER
     Route: 048
     Dates: start: 20120126, end: 20120715
  10. LYRICA [Concomitant]
     Indication: HYPOAESTHESIA
     Route: 048
     Dates: start: 20120402, end: 20120715
  11. FENTOS [Concomitant]
     Indication: CANCER PAIN
     Route: 062
     Dates: start: 20120213, end: 20120719
  12. PANTOSIN [Concomitant]
     Indication: CONSTIPATION
     Route: 048
     Dates: start: 20120205, end: 20120715
  13. MAGMITT [Concomitant]
     Indication: CONSTIPATION
     Route: 048
     Dates: start: 20120205, end: 20120715

REACTIONS (2)
  - Disease progression [Fatal]
  - Interstitial lung disease [Recovering/Resolving]
